FAERS Safety Report 6654400-X (Version None)
Quarter: 2010Q1

REPORT INFORMATION
  Report Type: 
  Country: None (occurrence: None)
  Receive Date: 20100326
  Receipt Date: 20100317
  Transmission Date: 20100710
  Serious: Yes (Other)
  Sender: FDA-Public Use
  Company Number: IL-PFIZER INC-2010034155

PATIENT
  Sex: Female

DRUGS (1)
  1. LIPITOR [Suspect]
     Dosage: 10 MG, UNK
     Dates: start: 20100309

REACTIONS (3)
  - CONTUSION [None]
  - MUSCLE SPASMS [None]
  - MYALGIA [None]
